FAERS Safety Report 25357999 (Version 1)
Quarter: 2025Q2

REPORT INFORMATION
  Report Type: Spontaneous
  Country: US (occurrence: US)
  Receive Date: 20250526
  Receipt Date: 20250526
  Transmission Date: 20250717
  Serious: No
  Sender: GLAND PHARMA LTD
  Company Number: US-GLANDPHARMA-US-2025GLNSPO01233

PATIENT

DRUGS (4)
  1. GEMCITABINE [Suspect]
     Active Substance: GEMCITABINE
     Indication: Lung neoplasm malignant
     Route: 065
  2. DOCETAXEL [Suspect]
     Active Substance: DOCETAXEL
     Indication: Lung neoplasm malignant
     Route: 065
  3. FENBENDAZOLE [Concomitant]
     Active Substance: FENBENDAZOLE
     Indication: Lung neoplasm malignant
     Route: 065
  4. IVERMECTIN [Concomitant]
     Active Substance: IVERMECTIN
     Indication: Lung neoplasm malignant
     Route: 065

REACTIONS (2)
  - Muscle fatigue [Unknown]
  - Product use in unapproved indication [Unknown]
